FAERS Safety Report 15801423 (Version 5)
Quarter: 2019Q1

REPORT INFORMATION
  Report Type: Report from Study
  Country: None (occurrence: BE)
  Receive Date: 20190109
  Receipt Date: 20190211
  Transmission Date: 20190417
  Serious: Yes (Hospitalization, Other)
  Sender: FDA-Public Use
  Company Number: BE-ABBVIE-19S-013-2617777-00

PATIENT
  Sex: Male

DRUGS (3)
  1. DUODOPA [Suspect]
     Active Substance: CARBIDOPA\LEVODOPA
     Dosage: DOSES CONTINUOUSLY MONITORED AND ADAPTED
     Route: 050
     Dates: start: 20140828, end: 20180917
  2. DUODOPA [Suspect]
     Active Substance: CARBIDOPA\LEVODOPA
     Indication: PARKINSON^S DISEASE
     Dosage: MD= 5ML CD= 2.5ML/HR DURING 16HRS  ED= 1.5ML
     Route: 050
     Dates: start: 20140825, end: 20140828
  3. DUODOPA [Suspect]
     Active Substance: CARBIDOPA\LEVODOPA
     Dosage: MD= 1.3ML CD= 3.6ML/HR DURING 16HRS  ED= 1.5ML ND= 2.8ML/HR DURING 8HRS
     Route: 050
     Dates: start: 20180917

REACTIONS (5)
  - Subdural haematoma [Unknown]
  - General physical health deterioration [Not Recovered/Not Resolved]
  - Unintentional medical device removal [Not Recovered/Not Resolved]
  - Somnolence [Unknown]
  - Depressed level of consciousness [Unknown]
